FAERS Safety Report 11274463 (Version 3)
Quarter: 2015Q3

REPORT INFORMATION
  Report Type: Report from Study
  Country: US (occurrence: US)
  Receive Date: 20150715
  Receipt Date: 20150911
  Transmission Date: 20151125
  Serious: Yes (Hospitalization)
  Sender: FDA-Public Use
  Company Number: US-ACTELION-A-US2015-119864

PATIENT
  Age: 67 Year
  Sex: Female

DRUGS (3)
  1. TREPROSTINIL DIOLAMIN [Concomitant]
     Active Substance: TREPROSTINIL DIOLAMINE
  2. MACITENTAN [Suspect]
     Active Substance: MACITENTAN
     Indication: PULMONARY ARTERIAL HYPERTENSION
     Dosage: 10 MG, QD
     Route: 048
  3. ADCIRCA [Concomitant]
     Active Substance: TADALAFIL

REACTIONS (11)
  - Pneumonia [Unknown]
  - Transient ischaemic attack [Unknown]
  - Hypotension [Unknown]
  - Muscle strain [Unknown]
  - Rib fracture [Unknown]
  - Skin discolouration [Unknown]
  - Pain [Unknown]
  - Oxygen saturation decreased [Unknown]
  - Cerebrovascular accident [Unknown]
  - Musculoskeletal chest pain [Unknown]
  - Drug dose omission [Unknown]
